FAERS Safety Report 6826384-2 (Version None)
Quarter: 2010Q3

REPORT INFORMATION
  Report Type: 
  Country: None (occurrence: None)
  Receive Date: 20100709
  Receipt Date: 20100630
  Transmission Date: 20110219
  Serious: Yes (Hospitalization, Other)
  Sender: FDA-Public Use
  Company Number: BR-ABBOTT-10P-020-0639579-00

PATIENT
  Sex: Female
  Weight: 75 kg

DRUGS (3)
  1. DEPAKOTE ER [Suspect]
     Indication: HEADACHE
     Dosage: 3 OR 4 TABLETS
     Route: 048
     Dates: start: 20100414
  2. PHENOBARBITAL [Concomitant]
     Indication: EPILEPSY
     Route: 048
  3. AMITRIPTYLINE HYDROCHLORIDE [Concomitant]
     Indication: THROMBOSIS

REACTIONS (5)
  - COMA [None]
  - EPILEPSY [None]
  - HYPERTENSION [None]
  - PNEUMONIA [None]
  - THROMBOSIS [None]
